FAERS Safety Report 5124393-5 (Version None)
Quarter: 2006Q3

REPORT INFORMATION
  Report Type: 
  Country: None (occurrence: None)
  Receive Date: 20060816
  Receipt Date: 20060501
  Transmission Date: 20061208
  Serious: No
  Sender: FDA-Public Use
  Company Number: US200605000124

PATIENT
  Age: 54 Year
  Sex: Male

DRUGS (3)
  1. CIALIS [Suspect]
     Indication: ERECTILE DYSFUNCTION
     Dosage: 20 MG,
     Dates: start: 20060430
  2. CELEBREX [Concomitant]
  3. TYLENOL W/ CODEINE NO. 3 [Concomitant]

REACTIONS (1)
  - DRUG INEFFECTIVE [None]
